FAERS Safety Report 14170636 (Version 1)
Quarter: 2017Q4

REPORT INFORMATION
  Report Type: Spontaneous
  Country: US (occurrence: US)
  Receive Date: 20171108
  Receipt Date: 20171108
  Transmission Date: 20180321
  Serious: No
  Sender: FDA-Public Use
  Company Number: US-TAKEDA-2017TUS022817

PATIENT
  Sex: Male

DRUGS (3)
  1. TRINTELLIX [Suspect]
     Active Substance: VORTIOXETINE HYDROBROMIDE
     Dosage: 10 MG, QD
     Route: 048
     Dates: start: 20171011, end: 20171018
  2. TRINTELLIX [Suspect]
     Active Substance: VORTIOXETINE HYDROBROMIDE
     Indication: CRANIOCEREBRAL INJURY
     Dosage: 5 MG, QD
     Route: 048
     Dates: start: 20171006, end: 20171010
  3. ALPRAZOLAM. [Concomitant]
     Active Substance: ALPRAZOLAM
     Indication: ANXIETY
     Dosage: UNK
     Route: 048

REACTIONS (6)
  - Off label use [Unknown]
  - Abdominal pain upper [Unknown]
  - Eyelid oedema [Unknown]
  - Nausea [Unknown]
  - Dizziness [Unknown]
  - Nasal oedema [Unknown]

NARRATIVE: CASE EVENT DATE: 201710
